FAERS Safety Report 4755062-9 (Version None)
Quarter: 2005Q3

REPORT INFORMATION
  Report Type: 
  Country: None (occurrence: None)
  Receive Date: 20050829
  Receipt Date: 20050801
  Transmission Date: 20060218
  Serious: Yes (Death, Hospitalization)
  Sender: FDA-Public Use
  Company Number: 2005AC01150

PATIENT
  Age: 27466 Day
  Sex: Male

DRUGS (14)
  1. CRESTOR [Suspect]
     Route: 048
     Dates: start: 20050331, end: 20050710
  2. CRESTOR [Suspect]
     Route: 048
     Dates: start: 20050713, end: 20050701
  3. SELOKEEN ZOC [Suspect]
     Route: 048
     Dates: start: 20050331, end: 20050710
  4. SELOKEEN ZOC [Suspect]
     Route: 048
     Dates: start: 20050713, end: 20050725
  5. PANTOZOL [Suspect]
     Route: 048
     Dates: start: 20050331, end: 20050710
  6. PANTOZOL [Suspect]
     Route: 048
     Dates: start: 20050713, end: 20050725
  7. PLAVIX [Suspect]
     Route: 048
     Dates: start: 20050331, end: 20050710
  8. PLAVIX [Suspect]
     Route: 048
     Dates: start: 20050713, end: 20050725
  9. HYDROCHLOROTHIAZIDUM [Suspect]
     Route: 048
     Dates: start: 20050331, end: 20050710
  10. HYDROCHLOROTHIAZIDUM [Suspect]
     Route: 048
     Dates: start: 20050713, end: 20050725
  11. ASCAL [Concomitant]
     Route: 048
     Dates: start: 20050331, end: 20050725
  12. COVERSYL [Concomitant]
     Route: 048
     Dates: start: 20050331
  13. CARBASALATE CALCIUM [Concomitant]
  14. PERINDOPRIL [Concomitant]

REACTIONS (3)
  - HEPATIC FAILURE [None]
  - HEPATITIS TOXIC [None]
  - PANCREATITIS [None]
